FAERS Safety Report 22651091 (Version 1)
Quarter: 2023Q2

REPORT INFORMATION
  Report Type: Spontaneous
  Country: US (occurrence: None)
  Receive Date: 20230627
  Receipt Date: 20230627
  Transmission Date: 20230722
  Serious: Yes (Other)
  Sender: FDA-Public Use
  Company Number: None

PATIENT
  Age: 40 Year
  Sex: Female
  Weight: 112 kg

DRUGS (1)
  1. HECTOROL [Suspect]
     Active Substance: DOXERCALCIFEROL
     Indication: Phosphorus metabolism disorder
     Dosage: FREQUENCY : 3 TIMES A WEEK;?
     Route: 040
     Dates: start: 20230619, end: 20230621

REACTIONS (9)
  - Dialysis [None]
  - Blood pressure increased [None]
  - Chest pain [None]
  - Pain [None]
  - Back pain [None]
  - Dyspnoea [None]
  - Hyperhidrosis [None]
  - Infusion related reaction [None]
  - Hypersensitivity [None]

NARRATIVE: CASE EVENT DATE: 20230621
